FAERS Safety Report 5711841-2 (Version None)
Quarter: 2008Q2

REPORT INFORMATION
  Report Type: 
  Country: None (occurrence: None)
  Receive Date: 20080421
  Receipt Date: 20080409
  Transmission Date: 20081010
  Serious: Yes (Other)
  Sender: FDA-Public Use
  Company Number: JP-PFIZER INC-2008032192

PATIENT
  Age: 37 Year
  Sex: Female

DRUGS (1)
  1. SOLU-MEDROL [Suspect]
     Route: 042

REACTIONS (1)
  - OSTEONECROSIS [None]
